FAERS Safety Report 15549563 (Version 1)
Quarter: 2018Q4

REPORT INFORMATION
  Report Type: Spontaneous
  Country: US (occurrence: US)
  Receive Date: 20181024
  Receipt Date: 20181024
  Transmission Date: 20190205
  Serious: Yes (Other)
  Sender: FDA-Public Use
  Company Number: None

PATIENT
  Age: 64 Year
  Sex: Female
  Weight: 67.5 kg

DRUGS (1)
  1. ZOLPIDEM TARTRATE 10 MG TABLET; COMMON BRAND AMBIEN; PEACH-YELLOW C [Suspect]
     Active Substance: ZOLPIDEM TARTRATE
     Indication: INSOMNIA
     Dosage: QUANTITY:1 TABLET(S); AT BEDTIME?
     Route: 048
     Dates: start: 20170501

REACTIONS (4)
  - Drug ineffective [None]
  - Therapeutic response changed [None]
  - Product substitution issue [None]
  - Insurance issue [None]

NARRATIVE: CASE EVENT DATE: 20180201
